FAERS Safety Report 9379505 (Version 2)
Quarter: 2013Q3

REPORT INFORMATION
  Report Type: Spontaneous
  Country: JP (occurrence: JP)
  Receive Date: 20130702
  Receipt Date: 20130705
  Transmission Date: 20140515
  Serious: Yes (Hospitalization)
  Sender: FDA-Public Use
  Company Number: PHHY2013JP060037

PATIENT
  Age: 75 Year
  Sex: Male

DRUGS (2)
  1. ONBREZ [Suspect]
     Indication: CHRONIC OBSTRUCTIVE PULMONARY DISEASE
     Dosage: 150 UG, DAILY
     Dates: start: 201303, end: 20130606
  2. CLARITHROMYCIN [Interacting]
     Dosage: 200 MG, UNK
     Route: 048

REACTIONS (5)
  - Henoch-Schonlein purpura [Recovering/Resolving]
  - Gastritis [Unknown]
  - Pyrexia [Unknown]
  - Drug level increased [Unknown]
  - Drug interaction [Unknown]
